FAERS Safety Report 6162843-6 (Version None)
Quarter: 2009Q2

REPORT INFORMATION
  Report Type: 
  Country: None (occurrence: None)
  Receive Date: 20090421
  Receipt Date: 20081020
  Transmission Date: 20091009
  Serious: No
  Sender: FDA-Public Use
  Company Number: US-ASTRAZENECA-2008UW23204

PATIENT
  Age: 60 Year
  Sex: Female
  Weight: 72.6 kg

DRUGS (3)
  1. TOPROL-XL [Suspect]
     Indication: HYPERTENSION
     Route: 048
  2. DYNACIRC CR [Concomitant]
  3. VYTORIN [Concomitant]

REACTIONS (2)
  - RASH GENERALISED [None]
  - SWELLING FACE [None]
